FAERS Safety Report 15166599 (Version 1)
Quarter: 2018Q3

REPORT INFORMATION
  Report Type: Report from Study
  Country: DE (occurrence: DE)
  Receive Date: 20180719
  Receipt Date: 20180719
  Transmission Date: 20181010
  Serious: Yes (Life-Threatening, Hospitalization)
  Sender: FDA-Public Use
  Company Number: DE-PFIZER INC-2018288448

PATIENT
  Age: 3 Year
  Sex: Male
  Weight: 18.5 kg

DRUGS (9)
  1. METHOTREXATE SODIUM. [Suspect]
     Active Substance: METHOTREXATE SODIUM
     Indication: STILL^S DISEASE
     Dosage: 7.5MG WEEKLY
     Route: 048
     Dates: start: 20151201
  2. URBASON [Suspect]
     Active Substance: METHYLPREDNISOLONE
     Indication: STILL^S DISEASE
     Dosage: 50 MG
     Route: 042
  3. URBASON [Suspect]
     Active Substance: METHYLPREDNISOLONE
     Dosage: 370 MG, MONTHLY
     Route: 042
     Dates: start: 20180415
  4. TRIAMCINOLONE HEXACETONIDE [Concomitant]
     Active Substance: TRIAMCINOLONE HEXACETONIDE
     Indication: STILL^S DISEASE
     Route: 014
     Dates: start: 20180220, end: 20180220
  5. TOCILIZUMAB. [Suspect]
     Active Substance: TOCILIZUMAB
     Indication: STILL^S DISEASE
     Dosage: 200MG EVERY 4 WEEKS
     Route: 042
     Dates: start: 20180307, end: 20180412
  6. IBUPROFEN. [Concomitant]
     Active Substance: IBUPROFEN
     Indication: STILL^S DISEASE
     Dosage: 450MG ONCE DAILY
     Route: 048
     Dates: start: 20150915
  7. PREDNISOLONE. [Concomitant]
     Active Substance: PREDNISOLONE
     Dosage: 7.5 MG, 1X/DAY
     Route: 048
  8. URBASON [Suspect]
     Active Substance: METHYLPREDNISOLONE
     Dosage: 200 MG, UNK
     Route: 042
     Dates: start: 20180412
  9. PREDNISOLONE. [Concomitant]
     Active Substance: PREDNISOLONE
     Indication: STILL^S DISEASE
     Dosage: 5MG ONCE DAILY
     Route: 048
     Dates: start: 20150915

REACTIONS (2)
  - Anaphylactic reaction [Recovered/Resolved]
  - Urinary tract infection bacterial [Recovered/Resolved]

NARRATIVE: CASE EVENT DATE: 20180412
